FAERS Safety Report 6412105-4 (Version None)
Quarter: 2009Q4

REPORT INFORMATION
  Report Type: 
  Country: None (occurrence: None)
  Receive Date: 20091023
  Receipt Date: 20091016
  Transmission Date: 20100525
  Serious: Yes (Other)
  Sender: FDA-Public Use
  Company Number: US-JNJFOC-20091005474

PATIENT
  Age: 15 Year
  Sex: Female

DRUGS (2)
  1. HALOPERIDOL [Suspect]
     Indication: AGITATION
     Route: 048
  2. LORAZEPAM [Concomitant]
     Indication: AGITATION
     Route: 048

REACTIONS (3)
  - HYPERNATRAEMIA [None]
  - NEUROLEPTIC MALIGNANT SYNDROME [None]
  - PLATELET COUNT INCREASED [None]
